FAERS Safety Report 24784137 (Version 1)
Quarter: 2024Q4

REPORT INFORMATION
  Report Type: Spontaneous
  Country: ES (occurrence: ES)
  Receive Date: 20241227
  Receipt Date: 20241227
  Transmission Date: 20250115
  Serious: Yes (Hospitalization)
  Sender: TEVA
  Company Number: None

PATIENT
  Age: 84 Year
  Sex: Male

DRUGS (3)
  1. GABAPENTIN [Interacting]
     Active Substance: GABAPENTIN
     Indication: Pain
     Dosage: GABAPENTINA (2641A)
     Route: 048
     Dates: start: 20241009, end: 20241014
  2. TRAMADOL [Interacting]
     Active Substance: TRAMADOL
     Indication: Pain
     Dosage: TRAMADOL HYDROCHLORIDE (2389CH)
     Route: 048
     Dates: start: 20241009, end: 20241014
  3. ACYCLOVIR [Interacting]
     Active Substance: ACYCLOVIR
     Indication: Herpes zoster
     Dosage: DISPERSIBLE TABLETS EFG, 35 TABLETS
     Route: 048
     Dates: start: 20241009, end: 20241014

REACTIONS (3)
  - Disorientation [Recovered/Resolved]
  - Hallucination [Recovered/Resolved]
  - Muscular weakness [Recovered/Resolved]

NARRATIVE: CASE EVENT DATE: 20241014
